FAERS Safety Report 5696500-7 (Version None)
Quarter: 2008Q2

REPORT INFORMATION
  Report Type: 
  Country: None (occurrence: None)
  Receive Date: 20080408
  Receipt Date: 20080327
  Transmission Date: 20081010
  Serious: Yes (Life-Threatening)
  Sender: FDA-Public Use
  Company Number: DE-WYE-G01259008

PATIENT
  Sex: Male

DRUGS (4)
  1. TREVILOR RETARD [Suspect]
     Dosage: 375MG PER DAY
     Route: 048
  2. TREVILOR RETARD [Suspect]
     Dosage: 500MG PER DAY
     Route: 048
  3. TREVILOR RETARD [Suspect]
     Dosage: 375MG PER DAY
     Route: 048
  4. LITHIUM CARBONATE [Suspect]
     Dosage: UNKNOWN
     Route: 048

REACTIONS (1)
  - NONSPECIFIC REACTION [None]
